FAERS Safety Report 18192295 (Version 1)
Quarter: 2020Q3

REPORT INFORMATION
  Report Type: Spontaneous
  Country: US (occurrence: US)
  Receive Date: 20200825
  Receipt Date: 20200825
  Transmission Date: 20201103
  Serious: Yes (Hospitalization)
  Sender: FDA-Public Use
  Company Number: None

PATIENT
  Age: 53 Year
  Sex: Female
  Weight: 81 kg

DRUGS (5)
  1. SIMVASTIN [Concomitant]
     Active Substance: SIMVASTATIN
  2. LIQUIDDEFENSE ANTIBACTERIAL HAND SANITIZER [Suspect]
     Active Substance: ALCOHOL
     Indication: INFECTION PROPHYLAXIS
     Dates: start: 20200824, end: 20200824
  3. METROPOLOL [Concomitant]
     Active Substance: METOPROLOL
  4. PANTAPROZONALE [Concomitant]
  5. FLOUOXITINE [Concomitant]

REACTIONS (6)
  - Oral herpes [None]
  - Gingival swelling [None]
  - Pharyngeal swelling [None]
  - Peripheral swelling [None]
  - Lip swelling [None]
  - Hypersensitivity [None]

NARRATIVE: CASE EVENT DATE: 20200824
